FAERS Safety Report 7215698-2 (Version None)
Quarter: 2011Q1

REPORT INFORMATION
  Report Type: 
  Country: None (occurrence: None)
  Receive Date: 20110104
  Receipt Date: 20110104
  Transmission Date: 20110831
  Serious: Yes (Other)
  Sender: FDA-Public Use
  Company Number: None

PATIENT
  Sex: Male
  Weight: 81.6475 kg

DRUGS (1)
  1. SIMVASTATIN [Suspect]
     Dosage: 1 TWICE A DAY

REACTIONS (4)
  - BACK PAIN [None]
  - PAIN [None]
  - GAIT DISTURBANCE [None]
  - FEELING ABNORMAL [None]
